FAERS Safety Report 15075188 (Version 1)
Quarter: 2018Q2

REPORT INFORMATION
  Report Type: Report from Study
  Country: US (occurrence: US)
  Receive Date: 20180627
  Receipt Date: 20180627
  Transmission Date: 20180711
  Serious: Yes (Other)
  Sender: FDA-Public Use
  Company Number: US-SAOL THERAPEUTICS-2017SAO01443

PATIENT
  Age: 53 Year
  Sex: Female

DRUGS (35)
  1. COMPOUNDED BACLOFEN [Suspect]
     Active Substance: BACLOFEN
     Dosage: 26.548 ?G, \DAY
     Route: 037
     Dates: start: 20170731, end: 20170803
  2. COMPOUNDED BACLOFEN [Suspect]
     Active Substance: BACLOFEN
     Dosage: 27.470 ?G, \DAY
     Route: 037
     Dates: start: 20170803
  3. DILAUDID [Suspect]
     Active Substance: HYDROMORPHONE HYDROCHLORIDE
     Dosage: MAX DOSE 0.519 MG, \DAY
     Route: 037
     Dates: start: 20170810
  4. BUPIVACAINE. [Suspect]
     Active Substance: BUPIVACAINE
     Dosage: 14.987 MG, \DAY
     Route: 037
     Dates: start: 20170810
  5. BUPIVACAINE. [Suspect]
     Active Substance: BUPIVACAINE
     Dosage: MAX DOSE 15.575 MG, \DAY
     Route: 037
     Dates: start: 20170810
  6. COMPOUNDED BACLOFEN [Suspect]
     Active Substance: BACLOFEN
     Dosage: MAX  DOSE 38.392 ?G, \DAY
     Route: 037
     Dates: start: 20170731, end: 20170803
  7. COMPOUNDED BACLOFEN [Suspect]
     Active Substance: BACLOFEN
     Dosage: MAX DOSE  39.298 ?G, \DAY
     Route: 037
     Dates: start: 20170803
  8. CLONIDINE. [Suspect]
     Active Substance: CLONIDINE
     Dosage: MAX 11.421 ?G, \DAY
     Route: 037
     Dates: start: 20170731, end: 20170803
  9. COMPOUNDED BACLOFEN [Suspect]
     Active Substance: BACLOFEN
     Dosage: MAX DOSE 126.09 ?G, \DAY
     Route: 037
     Dates: start: 20170802, end: 20170810
  10. DILAUDID [Suspect]
     Active Substance: HYDROMORPHONE HYDROCHLORIDE
     Dosage: 0.6204 MG, \DAY
     Route: 037
     Dates: start: 20170802, end: 20170810
  11. DILAUDID [Suspect]
     Active Substance: HYDROMORPHONE HYDROCHLORIDE
     Dosage: 0.4987 MG, \DAY
     Route: 037
     Dates: start: 20170810
  12. CLONIDINE. [Suspect]
     Active Substance: CLONIDINE
     Dosage: 7.898 ?G, \DAY
     Route: 037
     Dates: start: 20170731, end: 20170803
  13. BUPIVACAINE. [Suspect]
     Active Substance: BUPIVACAINE
     Dosage: 18.613 MG, \DAY
     Route: 037
     Dates: start: 20170802, end: 20170810
  14. BUPIVACAINE. [Suspect]
     Active Substance: BUPIVACAINE
     Dosage: 5.163 MG, \DAY
     Route: 037
     Dates: start: 20170731, end: 20170803
  15. BUPIVACAINE. [Suspect]
     Active Substance: BUPIVACAINE
     Dosage: 7.467 MG, \DAY
     Route: 037
     Dates: start: 20170731, end: 20170803
  16. BUPIVACAINE. [Suspect]
     Active Substance: BUPIVACAINE
     Dosage: MAX DOSE 18.914 MG, \DAY
     Route: 037
     Dates: start: 20170802, end: 20170810
  17. HYDROMORPHONE [Suspect]
     Active Substance: HYDROMORPHONE
     Dosage: 2.200 MG, \DAY
     Route: 037
     Dates: start: 20170803
  18. BUPIVACAINE. [Suspect]
     Active Substance: BUPIVACAINE
     Dosage: MAX 7.643 MG, \DAY
     Route: 037
     Dates: start: 20170803
  19. BUPIVACAINE. [Suspect]
     Active Substance: BUPIVACAINE
     Dosage: 5.343 MG, \DAY
     Route: 037
     Dates: start: 20170803
  20. CLONIDINE. [Suspect]
     Active Substance: CLONIDINE
     Dosage: 8.172 ?G, \DAY
     Route: 037
     Dates: start: 20170803
  21. DILAUDID [Suspect]
     Active Substance: HYDROMORPHONE HYDROCHLORIDE
     Dosage: 0.620 MG, \DAY
     Route: 037
     Dates: start: 20170720, end: 20170802
  22. DILAUDID [Suspect]
     Active Substance: HYDROMORPHONE HYDROCHLORIDE
     Dosage: MAX DOSE 0.6305 MG, \DAY
     Route: 037
     Dates: start: 20170802, end: 20170810
  23. HYDROMORPHONE [Suspect]
     Active Substance: HYDROMORPHONE
     Dosage: 2.126 MG, \DAY
     Route: 037
     Dates: start: 20170731, end: 20170803
  24. CLONIDINE. [Suspect]
     Active Substance: CLONIDINE
     Dosage: 11.690 ?G, \DAY
     Route: 037
     Dates: start: 20170803
  25. COMPOUNDED BACLOFEN [Suspect]
     Active Substance: BACLOFEN
     Dosage: 125.20 ?G, \DAY
     Route: 037
     Dates: start: 20170720, end: 20170802
  26. COMPOUNDED BACLOFEN [Suspect]
     Active Substance: BACLOFEN
     Dosage: 124.09 ?G, \DAY
     Route: 037
     Dates: start: 20170802, end: 20170810
  27. DILAUDID [Suspect]
     Active Substance: HYDROMORPHONE HYDROCHLORIDE
     Dosage: MAX DOSE 0.636 MG, \DAY
     Route: 037
     Dates: start: 20170720, end: 20170802
  28. BUPIVACAINE. [Suspect]
     Active Substance: BUPIVACAINE
     Dosage: 18.780 MG, \DAY
     Route: 037
     Dates: start: 20170720, end: 20170802
  29. HYDROMORPHONE [Suspect]
     Active Substance: HYDROMORPHONE
     Dosage: MAX DOSE 3.074 MG, \DAY
     Route: 037
     Dates: start: 20170731, end: 20170803
  30. HYDROMORPHONE [Suspect]
     Active Substance: HYDROMORPHONE
     Dosage: MAX DOSE 3.147 MG, \DAY
     Route: 037
     Dates: start: 20170803
  31. COMPOUNDED BACLOFEN [Suspect]
     Active Substance: BACLOFEN
     Dosage: MAX DOSE 127.21 ?G, \DAY
     Route: 037
     Dates: start: 20170720, end: 20170802
  32. COMPOUNDED BACLOFEN [Suspect]
     Active Substance: BACLOFEN
     Dosage: 99.91 ?G, \DAY
     Route: 037
     Dates: start: 20170810
  33. COMPOUNDED BACLOFEN [Suspect]
     Active Substance: BACLOFEN
     Dosage: MAX DOSE 103.84 ?G, \DAY
     Route: 037
     Dates: start: 20170810
  34. BUPIVACAINE. [Suspect]
     Active Substance: BUPIVACAINE
     Dosage: MAX DOSE 19.081 MG, \DAY
     Route: 037
     Dates: start: 20170720, end: 20170802
  35. BUPIVACAINE. [Suspect]
     Active Substance: BUPIVACAINE
     Dosage: UNK

REACTIONS (7)
  - Pain [Recovered/Resolved]
  - Pruritus [Recovered/Resolved]
  - Urinary incontinence [Recovered/Resolved]
  - Nausea [Recovered/Resolved]
  - Hyperhidrosis [Recovered/Resolved]
  - Chills [Recovered/Resolved]
  - Drug withdrawal syndrome [Recovered/Resolved]

NARRATIVE: CASE EVENT DATE: 20170728
